FAERS Safety Report 4983886-1 (Version None)
Quarter: 2006Q2

REPORT INFORMATION
  Report Type: 
  Country: None (occurrence: None)
  Receive Date: 20060426
  Receipt Date: 20050414
  Transmission Date: 20061013
  Serious: Yes (Hospitalization, Disabling, Other)
  Sender: FDA-Public Use
  Company Number: US-MERCK-0504USA02411

PATIENT
  Age: 56 Year
  Sex: Male
  Weight: 130 kg

DRUGS (1)
  1. VIOXX [Suspect]
     Indication: ARTHRITIS
     Route: 048
     Dates: start: 20021101, end: 20040209

REACTIONS (15)
  - ACUTE SINUSITIS [None]
  - BIPOLAR DISORDER [None]
  - CHEST PAIN [None]
  - FALL [None]
  - HEPATITIS [None]
  - INJURY [None]
  - MALAISE [None]
  - MYOCARDIAL INFARCTION [None]
  - NERVOUS SYSTEM DISORDER [None]
  - PAIN [None]
  - PULMONARY CONGESTION [None]
  - RASH [None]
  - RHINITIS ALLERGIC [None]
  - THERMAL BURN [None]
  - UPPER RESPIRATORY TRACT INFECTION [None]
